FAERS Safety Report 6216883-9 (Version None)
Quarter: 2009Q2

REPORT INFORMATION
  Report Type: 
  Country: None (occurrence: None)
  Receive Date: 20090605
  Receipt Date: 20090528
  Transmission Date: 20091009
  Serious: Yes (Other)
  Sender: FDA-Public Use
  Company Number: US-AMGEN-QUU349157

PATIENT
  Sex: Male

DRUGS (4)
  1. ENBREL [Suspect]
     Indication: RHEUMATOID ARTHRITIS
     Route: 058
     Dates: start: 20080421
  2. ENBREL [Suspect]
     Indication: ANKYLOSING SPONDYLITIS
  3. SULFASALAZINE [Concomitant]
  4. UNSPECIFIED NON-STEROIDAL ANTI-INFLAMMATORY AGENT [Concomitant]

REACTIONS (2)
  - GASTROINTESTINAL ULCER [None]
  - OSTEOARTHRITIS [None]
